FAERS Safety Report 19476917 (Version 1)
Quarter: 2021Q2

REPORT INFORMATION
  Report Type: Report from Study
  Country: MX (occurrence: MX)
  Receive Date: 20210630
  Receipt Date: 20210630
  Transmission Date: 20210717
  Serious: Yes (Death)
  Sender: FDA-Public Use
  Company Number: MX-UCBSA-2021031360

PATIENT
  Sex: Female

DRUGS (1)
  1. BRIVARACETAM [Suspect]
     Active Substance: BRIVARACETAM
     Indication: NERVOUS SYSTEM DISORDER
     Dosage: 50 MILLIGRAM, 2X/DAY (BID)

REACTIONS (2)
  - Product use in unapproved indication [Unknown]
  - Death [Fatal]
